FAERS Safety Report 4916186-6 (Version None)
Quarter: 2006Q1

REPORT INFORMATION
  Report Type: 
  Country: None (occurrence: None)
  Receive Date: 20060217
  Receipt Date: 20051005
  Transmission Date: 20060701
  Serious: Yes (Disabling, Other)
  Sender: FDA-Public Use
  Company Number: US-MERCK-0510USA05163

PATIENT
  Age: 61 Year
  Sex: Female
  Weight: 77 kg

DRUGS (4)
  1. VIOXX [Suspect]
     Indication: MYALGIA
     Route: 048
     Dates: start: 19990101, end: 20000101
  2. INSULIN [Concomitant]
     Route: 058
  3. [THERAPY UNSPECIFIED] [Concomitant]
     Route: 065
     Dates: start: 19990101, end: 20000101
  4. HUMALOG [Concomitant]
     Route: 065

REACTIONS (18)
  - ANGINA PECTORIS [None]
  - ARRHYTHMIA [None]
  - ARTERIAL OCCLUSIVE DISEASE [None]
  - BLOOD CHOLESTEROL INCREASED [None]
  - CARDIOVASCULAR DISORDER [None]
  - CORONARY ARTERY DISEASE [None]
  - CORONARY ARTERY OCCLUSION [None]
  - DIABETES MELLITUS [None]
  - EMOTIONAL DISTRESS [None]
  - EYE DISORDER [None]
  - FUNGAL INFECTION [None]
  - HYPERSENSITIVITY [None]
  - HYPERTENSION [None]
  - NEUROPATHY [None]
  - OESOPHAGEAL DISORDER [None]
  - RHEUMATOID ARTHRITIS [None]
  - SURGERY [None]
  - THROMBOSIS [None]
